FAERS Safety Report 10182548 (Version 1)
Quarter: 2014Q2

REPORT INFORMATION
  Report Type: Spontaneous
  Country: US (occurrence: None)
  Receive Date: 20140425
  Receipt Date: 20140425
  Transmission Date: 20141212
  Serious: No
  Sender: FDA-Public Use
  Company Number: 1329907

PATIENT
  Age: 42 Year
  Sex: Female

DRUGS (1)
  1. ZELBORAF [Suspect]
     Indication: METASTATIC MALIGNANT MELANOMA
     Dosage: 8 TABLETS PER DAY FOR APPROXIMATELY 6 WEEKS
     Route: 048
     Dates: start: 201303

REACTIONS (2)
  - Photosensitivity reaction [None]
  - Skin disorder [None]
